FAERS Safety Report 5396313-X (Version None)
Quarter: 2007Q3

REPORT INFORMATION
  Report Type: 
  Country: None (occurrence: None)
  Receive Date: 20070725
  Receipt Date: 20070716
  Transmission Date: 20080115
  Serious: Yes (Hospitalization, Disabling)
  Sender: FDA-Public Use
  Company Number: US-ELI_LILLY_AND_COMPANY-US200705007078

PATIENT
  Age: 57 Year
  Sex: Female
  Weight: 90.702 kg

DRUGS (5)
  1. BYETTA [Suspect]
     Indication: TYPE 2 DIABETES MELLITUS
     Dosage: 5 UG, 2/D
     Route: 058
     Dates: start: 20051102, end: 20060119
  2. BYETTA [Suspect]
     Dosage: 10 UG, 2/D
     Route: 058
     Dates: start: 20060120
  3. METFORMIN HCL [Concomitant]
     Indication: DIABETES MELLITUS
     Dosage: UNK, UNKNOWN
     Dates: start: 20030101
  4. LOTREL [Concomitant]
     Dosage: UNK D/F, UNKNOWN
  5. ZETIA [Concomitant]
     Dosage: 10 UNK, UNKNOWN

REACTIONS (5)
  - BITE [None]
  - CELLULITIS [None]
  - FALL [None]
  - JOINT DISLOCATION [None]
  - SCAR [None]
